FAERS Safety Report 11796075 (Version 1)
Quarter: 2015Q4

REPORT INFORMATION
  Report Type: Spontaneous
  Country: DE (occurrence: DE)
  Receive Date: 20151203
  Receipt Date: 20151203
  Transmission Date: 20160305
  Serious: Yes (Other)
  Sender: FDA-Public Use
  Company Number: DE-DRREDDYS-GER/GER/15/0054303

PATIENT
  Age: 38 Year
  Sex: Female
  Weight: 59 kg

DRUGS (5)
  1. VENLAFAXINE [Suspect]
     Active Substance: VENLAFAXINE HYDROCHLORIDE
     Indication: DEPRESSION
     Dosage: 225 MG/DAY AND DOSAGE WAS REDUCED TO 150MG/DAY FROM GESTATIONAL WEEKS 31.4.
     Route: 048
     Dates: start: 20141030, end: 20150725
  2. ACTRAPID [Concomitant]
     Active Substance: INSULIN HUMAN
     Indication: GESTATIONAL DIABETES
     Route: 058
     Dates: start: 20150625, end: 20150725
  3. FEMIBION [Concomitant]
     Active Substance: VITAMINS
     Indication: PROPHYLAXIS OF NEURAL TUBE DEFECT
     Route: 048
     Dates: start: 20141213, end: 20150725
  4. PROTAPHANE [Concomitant]
     Active Substance: INSULIN HUMAN
     Indication: GESTATIONAL DIABETES
     Dosage: 3 IE/DAY
     Route: 058
     Dates: start: 20150603, end: 20150725
  5. CYTOTEC [Concomitant]
     Active Substance: MISOPROSTOL
     Indication: LABOUR INDUCTION
     Route: 048
     Dates: start: 20150724, end: 20150725

REACTIONS (5)
  - Labour induction [Unknown]
  - Exposure during pregnancy [Unknown]
  - Gestational diabetes [Recovering/Resolving]
  - Foetal death [Recovered/Resolved]
  - Meconium in amniotic fluid [Unknown]
